FAERS Safety Report 5747479-0 (Version None)
Quarter: 2008Q2

REPORT INFORMATION
  Report Type: 
  Country: None (occurrence: None)
  Receive Date: 20080523
  Receipt Date: 20080513
  Transmission Date: 20081010
  Serious: No
  Sender: FDA-Public Use
  Company Number: US-ELI_LILLY_AND_COMPANY-US200805002561

PATIENT
  Sex: Male

DRUGS (2)
  1. CIALIS [Suspect]
     Dosage: 20 MG, UNK
     Route: 048
  2. ANTIHYPERTENSIVES [Concomitant]
     Indication: HYPERTENSION

REACTIONS (2)
  - VISION BLURRED [None]
  - VISUAL DISTURBANCE [None]
